FAERS Safety Report 11905420 (Version 1)
Quarter: 2016Q1

REPORT INFORMATION
  Report Type: Spontaneous
  Country: US (occurrence: US)
  Receive Date: 20160109
  Receipt Date: 20160109
  Transmission Date: 20160526
  Serious: No
  Sender: FDA-Public Use
  Company Number: US-JNJFOC-20151219828

PATIENT
  Sex: Male

DRUGS (1)
  1. RISPERDAL [Suspect]
     Active Substance: RISPERIDONE
     Indication: PRODUCT USED FOR UNKNOWN INDICATION
     Route: 065

REACTIONS (7)
  - Chest pain [Unknown]
  - Emotional distress [Unknown]
  - Adverse event [Unknown]
  - Gynaecomastia [Unknown]
  - Panic attack [Unknown]
  - Dyspnoea [Unknown]
  - Swollen tongue [Unknown]
